FAERS Safety Report 25755376 (Version 1)
Quarter: 2025Q3

REPORT INFORMATION
  Report Type: Spontaneous
  Country: EU (occurrence: EU)
  Receive Date: 20250903
  Receipt Date: 20250903
  Transmission Date: 20251021
  Serious: Yes (Life-Threatening, Hospitalization)
  Sender: MYLAN
  Company Number: EU-MYLANLABS-2025M1073755

PATIENT
  Age: 23 Year
  Sex: Female

DRUGS (12)
  1. AMIODARONE [Suspect]
     Active Substance: AMIODARONE
     Indication: Ventricular fibrillation
  2. AMIODARONE [Suspect]
     Active Substance: AMIODARONE
     Route: 065
  3. AMIODARONE [Suspect]
     Active Substance: AMIODARONE
     Route: 065
  4. AMIODARONE [Suspect]
     Active Substance: AMIODARONE
  5. METOPROLOL [Suspect]
     Active Substance: METOPROLOL
     Indication: Ventricular fibrillation
     Dosage: 1/4 CP TWICE DAILY
  6. METOPROLOL [Suspect]
     Active Substance: METOPROLOL
     Dosage: 1/4 CP TWICE DAILY
  7. METOPROLOL [Suspect]
     Active Substance: METOPROLOL
     Dosage: 1/4 CP TWICE DAILY
     Route: 065
  8. METOPROLOL [Suspect]
     Active Substance: METOPROLOL
     Dosage: 1/4 CP TWICE DAILY
     Route: 065
  9. METOPROLOL [Suspect]
     Active Substance: METOPROLOL
     Dosage: INCREASED TO 1/2 CP TWICE DAILY , BID
  10. METOPROLOL [Suspect]
     Active Substance: METOPROLOL
     Dosage: INCREASED TO 1/2 CP TWICE DAILY , BID
  11. METOPROLOL [Suspect]
     Active Substance: METOPROLOL
     Dosage: INCREASED TO 1/2 CP TWICE DAILY , BID
     Route: 065
  12. METOPROLOL [Suspect]
     Active Substance: METOPROLOL
     Dosage: INCREASED TO 1/2 CP TWICE DAILY , BID
     Route: 065

REACTIONS (1)
  - Drug ineffective [Unknown]
